FAERS Safety Report 6664803-5 (Version None)
Quarter: 2010Q1

REPORT INFORMATION
  Report Type: 
  Country: None (occurrence: None)
  Receive Date: 20100330
  Receipt Date: 20100315
  Transmission Date: 20100710
  Serious: Yes (Disabling)
  Sender: FDA-Public Use
  Company Number: 2010-0530

PATIENT
  Age: 39 Year
  Sex: Female
  Weight: 65.7 kg

DRUGS (2)
  1. DYSPORT [Suspect]
     Indication: SKIN WRINKLING
     Dosage: 72 UNITS (72 UNITS, SINGLE CYCLE), SUBCUTANEOUS , SINGLE CYCLE, SUBCUTANEOUS
     Route: 058
     Dates: start: 20091201, end: 20091201
  2. DYSPORT [Suspect]
     Indication: SKIN WRINKLING
     Dosage: 72 UNITS (72 UNITS, SINGLE CYCLE), SUBCUTANEOUS , SINGLE CYCLE, SUBCUTANEOUS
     Route: 058
     Dates: start: 20100201, end: 20100201

REACTIONS (8)
  - ASTHENOPIA [None]
  - BLINDNESS TRANSIENT [None]
  - DIZZINESS [None]
  - INAPPROPRIATE SCHEDULE OF DRUG ADMINISTRATION [None]
  - NAUSEA [None]
  - VISION BLURRED [None]
  - VISUAL IMPAIRMENT [None]
  - VOMITING [None]
